FAERS Safety Report 8308961-5 (Version None)
Quarter: 2012Q2

REPORT INFORMATION
  Report Type: 
  Country: None (occurrence: None)
  Receive Date: 20120424
  Receipt Date: 20120417
  Transmission Date: 20120825
  Serious: Yes (Hospitalization, Other)
  Sender: FDA-Public Use
  Company Number: US-ABBOTT-11P-163-0873155-00

PATIENT
  Sex: Female
  Weight: 99.88 kg

DRUGS (7)
  1. FOLIC ACID [Concomitant]
     Indication: PRODUCT USED FOR UNKNOWN INDICATION
  2. METHOTREXATE [Concomitant]
     Indication: PRODUCT USED FOR UNKNOWN INDICATION
  3. METHOTREXATE [Concomitant]
     Dates: start: 20120406
  4. HUMIRA [Suspect]
     Indication: RHEUMATOID ARTHRITIS
     Route: 058
     Dates: start: 20110701
  5. METOPROLOL TARTRATE [Concomitant]
     Indication: PRODUCT USED FOR UNKNOWN INDICATION
  6. LASIX [Concomitant]
     Indication: PRODUCT USED FOR UNKNOWN INDICATION
  7. SIMVASTATIN [Concomitant]
     Indication: PRODUCT USED FOR UNKNOWN INDICATION

REACTIONS (16)
  - SINUS PERFORATION [None]
  - TOOTHACHE [None]
  - WEIGHT INCREASED [None]
  - ORAL INFECTION [None]
  - SWELLING FACE [None]
  - EPISTAXIS [None]
  - SENSITIVITY OF TEETH [None]
  - CONDITION AGGRAVATED [None]
  - PAIN IN EXTREMITY [None]
  - MUSCULOSKELETAL PAIN [None]
  - SKIN DISCOLOURATION [None]
  - EYE SWELLING [None]
  - OEDEMA PERIPHERAL [None]
  - TOOTH FRACTURE [None]
  - MUSCLE SPASMS [None]
  - ARTHRALGIA [None]
